FAERS Safety Report 5306722-2 (Version None)
Quarter: 2007Q2

REPORT INFORMATION
  Report Type: 
  Country: None (occurrence: None)
  Receive Date: 20070424
  Receipt Date: 20070417
  Transmission Date: 20071010
  Serious: Yes (Other)
  Sender: FDA-Public Use
  Company Number: JP-PFIZER INC-2007031320

PATIENT
  Age: 66 Year
  Sex: Male

DRUGS (3)
  1. XALATAN [Suspect]
     Indication: GLAUCOMA
     Dates: start: 19990801
  2. MIKELAN [Concomitant]
  3. PIVALEPHRINE [Concomitant]

REACTIONS (2)
  - BLEPHARITIS ALLERGIC [None]
  - EYE SWELLING [None]
